FAERS Safety Report 8249589-5 (Version None)
Quarter: 2012Q2

REPORT INFORMATION
  Report Type: 
  Country: None (occurrence: None)
  Receive Date: 20120402
  Receipt Date: 20120323
  Transmission Date: 20120825
  Serious: Yes (Other)
  Sender: FDA-Public Use
  Company Number: AU-SANOFI-AVENTIS-2012SA021087

PATIENT
  Sex: Male

DRUGS (10)
  1. LANTUS [Suspect]
     Dosage: DOSE:32 UNIT(S)
     Route: 065
     Dates: start: 20050101
  2. VALSARTAN [Interacting]
     Route: 065
     Dates: start: 20110101
  3. EFFIENT [Interacting]
     Route: 065
     Dates: start: 20110101
  4. PRAVASTATIN [Interacting]
     Route: 065
     Dates: start: 20110101
  5. FUROSEMIDE [Interacting]
     Dosage: 40 MG IN THE MRONING AND 20 MG IN THE NIGHT.
     Route: 065
     Dates: start: 20110101
  6. PANTOPRAZOLE [Interacting]
     Route: 065
     Dates: start: 20110101
  7. LANTUS [Interacting]
     Dosage: DOSE:16 UNIT(S)
     Route: 065
     Dates: start: 20120322
  8. LANTUS [Interacting]
     Dosage: DOSE:14 UNIT(S)
     Route: 065
  9. SPIRONOLACTONE [Interacting]
     Route: 065
     Dates: start: 20110101
  10. CARVEDILOL [Interacting]
     Route: 065

REACTIONS (4)
  - CARDIAC DISORDER [None]
  - DRUG INTERACTION [None]
  - HYPOGLYCAEMIA [None]
  - BLOOD GLUCOSE FLUCTUATION [None]
